FAERS Safety Report 6695504-5 (Version None)
Quarter: 2010Q2

REPORT INFORMATION
  Report Type: 
  Country: None (occurrence: None)
  Receive Date: 20100426
  Receipt Date: 20100412
  Transmission Date: 20101027
  Serious: Yes (Hospitalization)
  Sender: FDA-Public Use
  Company Number: DE-RANBAXY-2009RR-26526

PATIENT
  Age: 80 Year
  Sex: Female
  Weight: 59 kg

DRUGS (15)
  1. AMLODIPINE [Suspect]
     Indication: HYPERTENSION
     Dosage: 5 MG, QD
     Route: 048
     Dates: start: 20081101, end: 20090515
  2. METHOTREXATE [Suspect]
     Indication: RHEUMATOID ARTHRITIS
     Dosage: 10 MG, QD
     Route: 058
     Dates: start: 20081101, end: 20090504
  3. CORDANUM [Suspect]
     Indication: TACHYARRHYTHMIA
     Dosage: 50 MG, QD
     Route: 048
     Dates: start: 20081101, end: 20090504
  4. DELIX [Suspect]
     Indication: HYPERTENSION
     Dosage: 2.5 MG, QD
     Route: 048
     Dates: start: 20000101
  5. FALITHROM [Suspect]
     Indication: TACHYARRHYTHMIA
     Dosage: 3 MG, QD
     Route: 048
     Dates: start: 20081101, end: 20090504
  6. OMEPRAZOLE [Suspect]
     Indication: PROPHYLAXIS AGAINST GASTROINTESTINAL ULCER
     Dosage: 20 MG, QD
     Route: 048
     Dates: start: 20081101, end: 20090503
  7. SEROQUEL [Suspect]
     Indication: RESTLESSNESS
     Dosage: 25 MG, QD
     Route: 048
     Dates: start: 20081101
  8. SIMVAHEXAL [Suspect]
     Indication: HYPERLIPIDAEMIA
     Dosage: 40 MG, QD
     Route: 048
     Dates: start: 20081101, end: 20090505
  9. TORSEMIDE [Suspect]
     Indication: HYPERTENSION
     Dosage: 200 MG, QD
     Route: 048
     Dates: start: 20081101
  10. ACTONEL 35 PLUS [Concomitant]
     Indication: OSTEOPOROSIS
     Dosage: 1 DF, QD
     Route: 048
     Dates: start: 20040101, end: 20090505
  11. DIGITOXIN TAB [Concomitant]
     Indication: TACHYARRHYTHMIA
     Dosage: 0.07 MG, UNK
     Route: 048
     Dates: start: 20081101
  12. DREISAFER [Concomitant]
     Indication: IRON DEFICIENCY
     Dosage: 100 MG, QD
     Route: 048
     Dates: start: 20081101, end: 20090504
  13. FOLIC ACID [Concomitant]
     Indication: IMMUNOSUPPRESSANT DRUG THERAPY
     Dosage: UNK
     Route: 048
     Dates: start: 20081101, end: 20090504
  14. PREDNISOLONE [Concomitant]
     Indication: RHEUMATOID ARTHRITIS
     Dosage: 5 MG, QD
     Route: 048
     Dates: start: 20020101
  15. XIPAMIDE [Concomitant]
     Indication: HYPERTENSION
     Dosage: 10 MG, QD
     Route: 048
     Dates: start: 20081101, end: 20090503

REACTIONS (3)
  - ALVEOLITIS [None]
  - DRUG INTERACTION [None]
  - TRANSAMINASES INCREASED [None]
